FAERS Safety Report 16982212 (Version 1)
Quarter: 2019Q4

REPORT INFORMATION
  Report Type: Other
  Country: GB (occurrence: GB)
  Receive Date: 20191101
  Receipt Date: 20191101
  Transmission Date: 20200122
  Serious: No
  Sender: FDA-Public Use
  Company Number: GB-LUPIN PHARMACEUTICALS INC.-2018-07998

PATIENT
  Age: 64 Year
  Sex: Female
  Weight: 64.41 kg

DRUGS (1)
  1. LISINOPRIL. [Suspect]
     Active Substance: LISINOPRIL
     Indication: HYPERTENSION
     Dosage: 2.5 MG, UNK
     Route: 048
     Dates: start: 20170901, end: 20181023

REACTIONS (1)
  - Alopecia [Unknown]

NARRATIVE: CASE EVENT DATE: 20180801
